FAERS Safety Report 6923407-7 (Version None)
Quarter: 2010Q3

REPORT INFORMATION
  Report Type: 
  Country: None (occurrence: None)
  Receive Date: 20100813
  Receipt Date: 20100809
  Transmission Date: 20110219
  Serious: Yes (Other)
  Sender: FDA-Public Use
  Company Number: US-PFIZER INC-2010100594

PATIENT
  Sex: Male
  Weight: 79.365 kg

DRUGS (15)
  1. VIAGRA [Suspect]
     Indication: ERECTILE DYSFUNCTION
     Dosage: 100 MG, AS NEEDED
     Dates: end: 20070101
  2. VIAGRA [Suspect]
     Dosage: 50 MG, AS NEEDED
     Route: 048
  3. CAVERJECT [Suspect]
     Indication: ERECTILE DYSFUNCTION
     Dosage: UNK
     Dates: start: 20070101, end: 20100101
  4. CELEBREX [Suspect]
     Dosage: UNK
     Dates: end: 20100101
  5. WARFARIN [Suspect]
     Dosage: UNK
  6. OMEPRAZOLE [Concomitant]
     Dosage: UNK
  7. CENTRUM SILVER [Concomitant]
     Dosage: UNK
  8. NIASPAN [Concomitant]
     Dosage: UNK
  9. LASIX [Concomitant]
     Dosage: UNK
  10. ACETYLSALICYLIC ACID [Concomitant]
     Dosage: 81 MG, DAILY
  11. ATENOLOL [Concomitant]
     Dosage: UNK
  12. IRON [Concomitant]
     Dosage: UNK
  13. ACETAMINOPHEN [Concomitant]
     Dosage: UNK
  14. SIMVASTATIN [Concomitant]
     Dosage: UNK
  15. NIFEDIPINE [Concomitant]
     Dosage: UNK

REACTIONS (6)
  - ABDOMINAL DISCOMFORT [None]
  - BLISTER [None]
  - DRUG INEFFECTIVE [None]
  - GASTRIC HAEMORRHAGE [None]
  - PHOTOSENSITIVITY REACTION [None]
  - THROMBOSIS [None]
